FAERS Safety Report 11632072 (Version 1)
Quarter: 2015Q4

REPORT INFORMATION
  Report Type: Spontaneous
  Country: US (occurrence: US)
  Receive Date: 20151015
  Receipt Date: 20151015
  Transmission Date: 20160304
  Serious: No
  Sender: FDA-Public Use
  Company Number: US-SUN PHARMACEUTICAL INDUSTRIES LTD-2015SUN00835

PATIENT
  Sex: Female

DRUGS (2)
  1. VENLAFAXINE HYDROCHLORIDE. [Suspect]
     Active Substance: VENLAFAXINE HYDROCHLORIDE
     Indication: DEPRESSION
     Dosage: 75 MG, BID
     Route: 048
  2. VENLAFAXINE HYDROCHLORIDE. [Suspect]
     Active Substance: VENLAFAXINE HYDROCHLORIDE
     Dosage: 1 AND 1/2 TABLET IN THE MORNING, NOON AND 1 TABLET IN THE EVENING
     Route: 048

REACTIONS (6)
  - Tinnitus [Unknown]
  - Dyskinesia [Unknown]
  - Tremor [Unknown]
  - Vision blurred [Unknown]
  - Product substitution issue [None]
  - Product quality issue [None]
